FAERS Safety Report 9802232 (Version 1)
Quarter: 2014Q1

REPORT INFORMATION
  Report Type: Spontaneous
  Country: CA (occurrence: CA)
  Receive Date: 20140107
  Receipt Date: 20140107
  Transmission Date: 20141002
  Serious: Yes (Death)
  Sender: FDA-Public Use
  Company Number: CA-ELI_LILLY_AND_COMPANY-CA201401000728

PATIENT
  Age: 81 Year
  Sex: Female

DRUGS (11)
  1. ADCIRCA [Suspect]
     Indication: PRODUCT USED FOR UNKNOWN INDICATION
     Dosage: UNK, UNKNOWN
     Route: 065
  2. VOLIBRIS [Concomitant]
     Indication: PULMONARY ARTERIAL HYPERTENSION
     Dosage: 10 MG, UNKNOWN
     Dates: start: 20101021
  3. ALENDRONATE [Concomitant]
  4. FERROUS GLUCONATE [Concomitant]
  5. LEFLUNOMIDE [Concomitant]
  6. FUROSEMIDE [Concomitant]
  7. PANTOPRAZOLE [Concomitant]
  8. AVASTIN                            /00848101/ [Concomitant]
  9. WARFARIN [Concomitant]
  10. VITAMIN D                          /00107901/ [Concomitant]
  11. TYLENOL                            /00020001/ [Concomitant]

REACTIONS (1)
  - Death [Fatal]
